FAERS Safety Report 6409495-5 (Version None)
Quarter: 2009Q4

REPORT INFORMATION
  Report Type: 
  Country: None (occurrence: None)
  Receive Date: 20091019
  Receipt Date: 20091009
  Transmission Date: 20100525
  Serious: Yes (Other)
  Sender: FDA-Public Use
  Company Number: CIP09002842

PATIENT
  Age: 50 Year
  Sex: Male

DRUGS (1)
  1. MACRODANTIN (NITROFURANTOIN) MACROCRYSTALS) CAPSULE, 50MG [Suspect]
     Indication: PROSTATITIS
     Dosage: 50 MG, ORAL
     Route: 048

REACTIONS (2)
  - INTRAOCULAR PRESSURE INCREASED [None]
  - PAPILLOEDEMA [None]
